FAERS Safety Report 7361026-1 (Version None)
Quarter: 2011Q1

REPORT INFORMATION
  Report Type: 
  Country: None (occurrence: None)
  Receive Date: 20110315
  Receipt Date: 20110315
  Transmission Date: 20110831
  Serious: No
  Sender: FDA-Public Use
  Company Number: None

PATIENT
  Age: 67 Year
  Sex: Female
  Weight: 113.3993 kg

DRUGS (1)
  1. NUCYNTA [Suspect]
     Indication: SURGERY
     Dosage: 2 TABS. EVER 6 HRS
     Dates: start: 20101004

REACTIONS (1)
  - ERYTHEMA [None]
